FAERS Safety Report 9541659 (Version 2)
Quarter: 2013Q3

REPORT INFORMATION
  Report Type: Report from Study
  Country: AU (occurrence: AU)
  Receive Date: 20130923
  Receipt Date: 20130923
  Transmission Date: 20140515
  Serious: Yes (Hospitalization, Other)
  Sender: FDA-Public Use
  Company Number: AU-ROCHE-1243760

PATIENT
  Age: 60 Year
  Sex: Female

DRUGS (9)
  1. ACTEMRA [Suspect]
     Indication: RHEUMATOID ARTHRITIS
     Dosage: ONGOING
     Route: 042
     Dates: start: 20100928
  2. METHOTRATE [Concomitant]
  3. CYMBALTA [Concomitant]
  4. PREDNISOLONE [Concomitant]
  5. LIPITOR [Concomitant]
  6. NEXIUM [Concomitant]
  7. SPIRONOLACTONE [Concomitant]
  8. FRUSEMIDE [Concomitant]
  9. MOCLOBEMIDE [Concomitant]
     Route: 065

REACTIONS (4)
  - Epilepsy [Recovered/Resolved]
  - Contusion [Unknown]
  - Fibula fracture [Recovered/Resolved]
  - Weight decreased [Unknown]
